FAERS Safety Report 12833756 (Version 5)
Quarter: 2016Q4

REPORT INFORMATION
  Report Type: Spontaneous
  Country: TR (occurrence: TR)
  Receive Date: 20161010
  Receipt Date: 20161220
  Transmission Date: 20170207
  Serious: Yes (Hospitalization)
  Sender: FDA-Public Use
  Company Number: TR-GILEAD-2016-0237346

PATIENT
  Age: 75 Year
  Sex: Female
  Weight: 65 kg

DRUGS (2)
  1. HARVONI [Suspect]
     Active Substance: LEDIPASVIR\SOFOSBUVIR
     Indication: HEPATIC CIRRHOSIS
  2. HARVONI [Suspect]
     Active Substance: LEDIPASVIR\SOFOSBUVIR
     Indication: HEPATITIS C
     Dosage: 1 DF, QD
     Route: 048

REACTIONS (8)
  - Dyspnoea [Recovered/Resolved]
  - Erythema [Recovered/Resolved]
  - Erythema nodosum [Recovered/Resolved]
  - Asthenia [Recovered/Resolved]
  - Joint swelling [Recovered/Resolved]
  - Bedridden [Recovered/Resolved]
  - Pyrexia [Recovered/Resolved]
  - Ocular hyperaemia [Recovered/Resolved]

NARRATIVE: CASE EVENT DATE: 20160901
